FAERS Safety Report 8608281-5 (Version None)
Quarter: 2012Q3

REPORT INFORMATION
  Report Type: 
  Country: None (occurrence: None)
  Receive Date: 20120821
  Receipt Date: 20120817
  Transmission Date: 20120928
  Serious: Yes (Life-Threatening, Hospitalization)
  Sender: FDA-Public Use
  Company Number: FR-JNJFOC-20120804129

PATIENT
  Sex: Male

DRUGS (4)
  1. CLOZAPINE [Suspect]
     Indication: SCHIZOPHRENIA, DISORGANISED TYPE
     Dosage: LONG-TERM
     Route: 048
  2. LEPTICUR [Suspect]
     Indication: DYSKINESIA
     Dosage: LONG-TERM
     Route: 048
  3. TRANXENE [Concomitant]
     Route: 065
  4. HALOPERIDOL LACTATE [Suspect]
     Indication: SCHIZOPHRENIA, DISORGANISED TYPE
     Dosage: LONG-TERM
     Route: 048

REACTIONS (2)
  - VOLVULUS [None]
  - ISCHAEMIA [None]
